FAERS Safety Report 4572240-2 (Version None)
Quarter: 2005Q1

REPORT INFORMATION
  Report Type: 
  Country: None (occurrence: None)
  Receive Date: 20050203
  Receipt Date: 20050117
  Transmission Date: 20050727
  Serious: Yes (Hospitalization)
  Sender: FDA-Public Use
  Company Number: A01200500299

PATIENT
  Age: 48 Year
  Sex: Male

DRUGS (3)
  1. STILNOX            (ZOLPIDEM) [Suspect]
     Indication: INSOMNIA
     Dosage: 10 MG OD/60 MG IN TWO DAYS, ORAL
     Route: 048
     Dates: start: 20050112, end: 20050113
  2. STILNOX            (ZOLPIDEM) [Suspect]
     Indication: OVERDOSE
     Dosage: 10 MG OD/60 MG IN TWO DAYS, ORAL
     Route: 048
     Dates: start: 20050112, end: 20050113
  3. STILNOX            (ZOLPIDEM) [Suspect]
     Indication: POST PROCEDURAL COMPLICATION
     Dosage: 10 MG OD/60 MG IN TWO DAYS, ORAL
     Route: 048
     Dates: start: 20050112, end: 20050113

REACTIONS (5)
  - AMNESIA [None]
  - CEREBRAL DISORDER [None]
  - DRUG ABUSER [None]
  - GRAND MAL CONVULSION [None]
  - LOSS OF CONSCIOUSNESS [None]
